FAERS Safety Report 21797179 (Version 2)
Quarter: 2025Q2

REPORT INFORMATION
  Report Type: Spontaneous
  Country: ES (occurrence: ES)
  Receive Date: 20221230
  Receipt Date: 20250603
  Transmission Date: 20250716
  Serious: Yes (Hospitalization, Other)
  Sender: AUROBINDO
  Company Number: ES-MLMSERVICE-20221212-3974940-1

PATIENT
  Age: 47 Year
  Sex: Male

DRUGS (1)
  1. CLOZAPINE [Suspect]
     Active Substance: CLOZAPINE
     Indication: Schizophrenia
     Route: 065

REACTIONS (3)
  - Ventricular hypokinesia [Unknown]
  - Myocarditis [Unknown]
  - Left ventricular dysfunction [Unknown]
